FAERS Safety Report 5903252-1 (Version None)
Quarter: 2008Q3

REPORT INFORMATION
  Report Type: 
  Country: None (occurrence: None)
  Receive Date: 20080926
  Receipt Date: 20080914
  Transmission Date: 20090109
  Serious: Yes (Hospitalization)
  Sender: FDA-Public Use
  Company Number: 238774J08USA

PATIENT
  Age: 35 Year
  Sex: Male

DRUGS (2)
  1. REBIF [Suspect]
     Indication: MULTIPLE SCLEROSIS
     Dosage: 44 MCG, 3 IN 1 WEEKS, SUBCUTANEOUS
     Route: 058
     Dates: start: 20050413
  2. ACETAMINOPHEN [Concomitant]

REACTIONS (4)
  - ABASIA [None]
  - MUSCLE SPASMS [None]
  - OPTIC NEURITIS [None]
  - PAIN [None]
